FAERS Safety Report 5074143-6 (Version None)
Quarter: 2006Q3

REPORT INFORMATION
  Report Type: 
  Country: None (occurrence: None)
  Receive Date: 20060808
  Receipt Date: 20060727
  Transmission Date: 20061208
  Serious: Yes (Other)
  Sender: FDA-Public Use
  Company Number: AU-BRISTOL-MYERS SQUIBB COMPANY-13456686

PATIENT
  Age: 51 Year
  Sex: Female

DRUGS (5)
  1. MAXIPIME [Suspect]
     Dates: start: 20040812, end: 20040812
  2. CIPROFLOXACIN [Suspect]
     Dates: start: 20040802, end: 20040811
  3. VANCOMYCIN [Suspect]
     Dates: start: 20040811, end: 20040812
  4. MEROPENEM [Suspect]
     Dates: start: 20040811, end: 20040812
  5. TIMENTIN [Suspect]
     Dates: start: 20040731, end: 20040811

REACTIONS (3)
  - PRURITUS [None]
  - RASH [None]
  - SWELLING FACE [None]
